FAERS Safety Report 6556626-2 (Version None)
Quarter: 2010Q1

REPORT INFORMATION
  Report Type: 
  Country: None (occurrence: None)
  Receive Date: 20100125
  Receipt Date: 20100112
  Transmission Date: 20100710
  Serious: Yes (Other)
  Sender: FDA-Public Use
  Company Number: 1000011372

PATIENT
  Sex: Female

DRUGS (2)
  1. ESCITALOPRAM [Suspect]
     Dosage: 10 MG 910 MG, 1 IN 1 D), ORAL
     Route: 048
     Dates: end: 20091201
  2. ESCITALOPRAM [Suspect]
     Dosage: 20 MG 920 MG, 1 IN 1 D), ORAL; 10 MG (10 MG, 1 IN 1 D), ORAL
     Route: 048
     Dates: start: 20091201

REACTIONS (5)
  - ABDOMINAL DISCOMFORT [None]
  - EPISTAXIS [None]
  - GINGIVAL BLEEDING [None]
  - OEDEMA PERIPHERAL [None]
  - VASCULAR RUPTURE [None]
